FAERS Safety Report 7211724-5 (Version None)
Quarter: 2011Q1

REPORT INFORMATION
  Report Type: 
  Country: None (occurrence: None)
  Receive Date: 20110105
  Receipt Date: 20101228
  Transmission Date: 20110831
  Serious: Yes (Hospitalization)
  Sender: FDA-Public Use
  Company Number: FR-PFIZER INC-2010179996

PATIENT
  Age: 27 Year
  Sex: Male

DRUGS (3)
  1. GENTAMICIN [Suspect]
     Dosage: UNK
     Route: 042
     Dates: start: 20101219, end: 20101220
  2. VANCOMYCIN HCL [Suspect]
     Dosage: UNK
     Route: 042
     Dates: start: 20101219, end: 20101220
  3. LYRICA [Suspect]
     Dosage: UNK
     Dates: end: 20101221

REACTIONS (1)
  - NEUTROPENIA [None]
